FAERS Safety Report 10916432 (Version 2)
Quarter: 2015Q2

REPORT INFORMATION
  Report Type: Report from Study
  Country: US (occurrence: US)
  Receive Date: 20150316
  Receipt Date: 20150618
  Transmission Date: 20150821
  Serious: No
  Sender: FDA-Public Use
  Company Number: US-VERTEX PHARMACEUTICALS-2015-000735

PATIENT
  Age: 15 Year
  Sex: Female

DRUGS (1)
  1. KALYDECO [Suspect]
     Active Substance: IVACAFTOR
     Indication: CYSTIC FIBROSIS
     Dosage: 150 MG, BID
     Route: 048
     Dates: start: 20130910

REACTIONS (11)
  - Influenza like illness [Unknown]
  - Orthostatic hypertension [Not Recovered/Not Resolved]
  - Headache [Unknown]
  - Feeling hot [Unknown]
  - Drug dose omission [Unknown]
  - Depressed mood [Unknown]
  - Flushing [Unknown]
  - Insomnia [Unknown]
  - Drug interaction [Unknown]
  - Hyponatraemia [Unknown]
  - Pallor [Not Recovered/Not Resolved]

NARRATIVE: CASE EVENT DATE: 201501
